FAERS Safety Report 23281766 (Version 1)
Quarter: 2023Q4

REPORT INFORMATION
  Report Type: Report from Study
  Country: AT (occurrence: AT)
  Receive Date: 20231211
  Receipt Date: 20231211
  Transmission Date: 20240109
  Serious: Yes (Other)
  Sender: FDA-Public Use
  Company Number: AT-AMGEN-AUTNI2023219296

PATIENT
  Age: 61 Year
  Sex: Male
  Weight: 178 kg

DRUGS (32)
  1. PANITUMUMAB [Suspect]
     Active Substance: PANITUMUMAB
     Indication: Colorectal cancer metastatic
     Dosage: 450 MILLIGRAM
     Route: 042
     Dates: start: 20200616
  2. PANITUMUMAB [Suspect]
     Active Substance: PANITUMUMAB
     Dosage: 444 MILLIGRAM
     Route: 042
     Dates: start: 20200715
  3. PANITUMUMAB [Suspect]
     Active Substance: PANITUMUMAB
     Dosage: 462 MILLIGRAM
     Route: 042
     Dates: start: 20200909
  4. PANITUMUMAB [Suspect]
     Active Substance: PANITUMUMAB
     Dosage: 456 MILLIGRAM
     Route: 042
     Dates: start: 20201201
  5. PANITUMUMAB [Suspect]
     Active Substance: PANITUMUMAB
     Dosage: 480 MILLIGRAM
     Route: 042
     Dates: start: 20230523
  6. PANITUMUMAB [Suspect]
     Active Substance: PANITUMUMAB
     Dosage: 468 MILLIGRAM
     Route: 042
     Dates: start: 20230606
  7. PANITUMUMAB [Suspect]
     Active Substance: PANITUMUMAB
     Dosage: 467 MILLIGRAM
     Route: 042
     Dates: start: 20230704
  8. PANITUMUMAB [Suspect]
     Active Substance: PANITUMUMAB
     Dosage: 471 MILLIGRAM
     Route: 042
     Dates: start: 20231003
  9. PANITUMUMAB [Suspect]
     Active Substance: PANITUMUMAB
     Dosage: 475 MILLIGRAM
     Route: 042
     Dates: start: 20231017
  10. PANITUMUMAB [Suspect]
     Active Substance: PANITUMUMAB
     Dosage: 474 MILLIGRAM
     Route: 042
     Dates: start: 20231102
  11. LEUCOVORIN [Suspect]
     Active Substance: LEUCOVORIN\LEUCOVORIN CALCIUM
     Indication: Colorectal cancer metastatic
     Dosage: 385 MILLIGRAM
     Route: 065
     Dates: start: 20200616
  12. LEUCOVORIN [Suspect]
     Active Substance: LEUCOVORIN\LEUCOVORIN CALCIUM
     Dosage: 383 MILLIGRAM
     Route: 065
     Dates: start: 20200715
  13. LEUCOVORIN [Suspect]
     Active Substance: LEUCOVORIN\LEUCOVORIN CALCIUM
     Dosage: 390 MILLIGRAM
     Route: 065
     Dates: start: 20200909
  14. LEUCOVORIN [Suspect]
     Active Substance: LEUCOVORIN\LEUCOVORIN CALCIUM
     Dosage: 388 MILLIGRAM
     Route: 065
     Dates: start: 20201201
  15. FLUOROURACIL [Suspect]
     Active Substance: FLUOROURACIL
     Indication: Colorectal cancer metastatic
     Dosage: 1156 MILLIGRAM
     Route: 042
     Dates: start: 20200616
  16. FLUOROURACIL [Suspect]
     Active Substance: FLUOROURACIL
     Dosage: 1150 MILLIGRAM
     Route: 042
     Dates: start: 20200715
  17. FLUOROURACIL [Suspect]
     Active Substance: FLUOROURACIL
     Dosage: 1169 MILLIGRAM
     Route: 042
     Dates: start: 20200909
  18. FLUOROURACIL [Suspect]
     Active Substance: FLUOROURACIL
     Dosage: 1163 MILLIGRAM
     Route: 042
     Dates: start: 20201201
  19. OXALIPLATIN [Suspect]
     Active Substance: OXALIPLATIN
     Indication: Colorectal cancer metastatic
     Dosage: 164 MILLIGRAM
     Route: 065
     Dates: start: 20200616
  20. OXALIPLATIN [Suspect]
     Active Substance: OXALIPLATIN
     Dosage: 163 MILLIGRAM
     Route: 065
     Dates: start: 20200715
  21. OXALIPLATIN [Suspect]
     Active Substance: OXALIPLATIN
     Dosage: 124 MILLIGRAM
     Route: 065
     Dates: start: 20200909
  22. OXALIPLATIN [Suspect]
     Active Substance: OXALIPLATIN
     Dosage: 123 MILLIGRAM
     Route: 065
     Dates: start: 20201021
  23. OXALIPLATIN [Suspect]
     Active Substance: OXALIPLATIN
     Dosage: 122 MILLIGRAM
     Route: 065
     Dates: start: 20211122
  24. ASPIRIN [Concomitant]
     Active Substance: ASPIRIN
     Indication: Thrombosis prophylaxis
     Dosage: 100 MILLIGRAM
     Route: 048
  25. AMLODIPINE BESYLATE [Concomitant]
     Active Substance: AMLODIPINE BESYLATE
     Indication: Hypertension
     Dosage: 10 MILLIGRAM
     Route: 048
  26. SYMBICORT [Concomitant]
     Active Substance: BUDESONIDE\FORMOTEROL FUMARATE DIHYDRATE
     Indication: Chronic obstructive pulmonary disease
     Dosage: 2 UNK, BID
     Dates: end: 20221023
  27. DEXAMETHASONE [Concomitant]
     Active Substance: DEXAMETHASONE
     Indication: Peptic ulcer
     Dosage: 4 MILLIGRAM PRN
     Route: 048
     Dates: start: 20200616, end: 20231106
  28. GRANISETRON HYDROCHLORIDE [Concomitant]
     Active Substance: GRANISETRON HYDROCHLORIDE
     Indication: Nausea
     Dosage: 2 MILLIGRAM PRN
     Route: 048
     Dates: start: 20200616, end: 20221023
  29. Paspertin [Concomitant]
     Indication: Nausea
     Dosage: 10 MILLIGRAM
     Route: 048
     Dates: start: 20200616, end: 20231106
  30. LOPERAMIDE HYDROCHLORIDE [Concomitant]
     Active Substance: LOPERAMIDE HYDROCHLORIDE
     Indication: Diarrhoea
     Dosage: 2 MILLIGRAM
     Route: 048
     Dates: start: 20200616, end: 20200909
  31. PANTOPRAZOLE SODIUM [Concomitant]
     Active Substance: PANTOPRAZOLE SODIUM
     Indication: Gastrooesophageal reflux disease
     Dosage: 40 MILLIGRAM
     Route: 048
     Dates: start: 20221024
  32. MINOSTAD [Concomitant]
     Indication: Rash
     Dosage: 50 MILLIGRAM, BID
     Route: 048
     Dates: start: 20200617, end: 20231106

REACTIONS (1)
  - Polyneuropathy [Recovered/Resolved]

NARRATIVE: CASE EVENT DATE: 20211103
